FAERS Safety Report 9841153 (Version 3)
Quarter: 2014Q2

REPORT INFORMATION
  Report Type: Spontaneous
  Country: JP (occurrence: JP)
  Receive Date: 20140124
  Receipt Date: 20140409
  Transmission Date: 20141212
  Serious: Yes (Hospitalization, Other)
  Sender: FDA-Public Use
  Company Number: JP-SA-2013SA105531

PATIENT
  Age: 67 Year
  Sex: Male

DRUGS (12)
  1. ZOLEDRONIC ACID [Suspect]
     Indication: METASTASES TO BONE
     Dosage: 4 MG/DOSEX10 DOSES
     Route: 041
     Dates: start: 2010, end: 2011
  2. ZOLEDRONIC ACID [Suspect]
     Indication: PROSTATE CANCER METASTATIC
     Dosage: 4 MG/DOSEX10 DOSES
     Route: 041
     Dates: start: 2010, end: 2011
  3. TAXOTERE [Suspect]
     Indication: METASTASES TO BONE
     Route: 042
     Dates: start: 201105
  4. TAXOTERE [Suspect]
     Indication: PROSTATE CANCER METASTATIC
     Route: 042
     Dates: start: 201105
  5. DEXAMETHASONE [Suspect]
     Indication: METASTASES TO BONE
     Route: 048
     Dates: start: 2010, end: 2011
  6. DEXAMETHASONE [Suspect]
     Indication: PROSTATE CANCER METASTATIC
     Route: 048
     Dates: start: 2010, end: 2011
  7. CYCLOPHOSPHAMIDE [Suspect]
     Indication: METASTASES TO BONE
     Route: 048
     Dates: start: 2011, end: 2011
  8. CYCLOPHOSPHAMIDE [Suspect]
     Indication: PROSTATE CANCER METASTATIC
     Route: 048
     Dates: start: 2011, end: 2011
  9. ESTRAMUSTINE [Suspect]
     Indication: METASTASES TO BONE
     Route: 065
     Dates: start: 2010, end: 201011
  10. ESTRAMUSTINE [Suspect]
     Indication: PROSTATE CANCER METASTATIC
     Route: 065
     Dates: start: 2010, end: 201011
  11. BICALUTAMIDE [Concomitant]
     Indication: METASTASES TO BONE
     Dates: start: 2009
  12. ALL OTHER THERAPEUTIC PRODUCTS [Concomitant]
     Indication: METASTASES TO BONE
     Dates: start: 2009

REACTIONS (25)
  - Neutropenia [Recovered/Resolved]
  - Osteonecrosis of jaw [Recovering/Resolving]
  - Pain in jaw [Unknown]
  - Bone swelling [Unknown]
  - Bone pain [Unknown]
  - White blood cell count increased [Unknown]
  - C-reactive protein increased [Recovering/Resolving]
  - Exposed bone in jaw [Unknown]
  - Soft tissue infection [Unknown]
  - Renal failure [Recovering/Resolving]
  - Blood urea increased [Unknown]
  - Blood creatinine increased [Recovered/Resolved]
  - Gas gangrene [Unknown]
  - Cellulitis [Unknown]
  - Tracheal obstruction extrinsic [Unknown]
  - Local swelling [Unknown]
  - Soft tissue disorder [Unknown]
  - Tracheal deviation [Unknown]
  - Pharyngeal abscess [Unknown]
  - Respiratory disorder [Unknown]
  - Oxygen saturation decreased [Unknown]
  - PCO2 decreased [Unknown]
  - Dyspnoea [Unknown]
  - Mediastinitis [Unknown]
  - Off label use [Unknown]
